FAERS Safety Report 9165533 (Version 1)
Quarter: 2013Q1

REPORT INFORMATION
  Report Type: Report from Study
  Country: NL (occurrence: NL)
  Receive Date: 20130315
  Receipt Date: 20130315
  Transmission Date: 20140127
  Serious: Yes (Hospitalization)
  Sender: FDA-Public Use
  Company Number: NL-BAXTER-2013BAX008987

PATIENT
  Age: 44 Year
  Sex: Male
  Weight: 84 kg

DRUGS (9)
  1. ENDOXAN I.V., POEDER VOOR OPLOSSING VOOR INJECTIE 200, 500, 1000 MG [Suspect]
     Indication: MALIGNANT LYMPHOID NEOPLASM
     Route: 042
     Dates: start: 20120117
  2. RITUXIMAB [Suspect]
     Indication: MALIGNANT LYMPHOID NEOPLASM
     Route: 042
     Dates: start: 20120117
  3. PREDNISONE [Suspect]
     Indication: MALIGNANT LYMPHOID NEOPLASM
     Route: 048
     Dates: start: 20120117
  4. PREDNISONE [Suspect]
     Route: 048
     Dates: start: 20120121
  5. DOXORUBICIN [Suspect]
     Indication: MALIGNANT LYMPHOID NEOPLASM
     Route: 042
     Dates: start: 20120117
  6. VINCRISTINE [Suspect]
     Indication: MALIGNANT LYMPHOID NEOPLASM
     Route: 042
     Dates: start: 20120117
  7. PEGFILGRASTIM [Suspect]
     Indication: MALIGNANT LYMPHOID NEOPLASM
     Route: 058
     Dates: start: 20120118
  8. COTRIMOXAZOLE [Concomitant]
     Indication: PRODUCT USED FOR UNKNOWN INDICATION
     Route: 048
     Dates: start: 20120117, end: 20120201
  9. VALACICLOVIR [Concomitant]
     Indication: PRODUCT USED FOR UNKNOWN INDICATION
     Route: 048
     Dates: start: 20120117, end: 20120201

REACTIONS (4)
  - Abdominal abscess [Recovered/Resolved with Sequelae]
  - Wound infection [Recovered/Resolved]
  - Diverticulitis [None]
  - Ileus [None]
